FAERS Safety Report 19785639 (Version 2)
Quarter: 2021Q4

REPORT INFORMATION
  Report Type: Report from Study
  Country: CA (occurrence: CA)
  Receive Date: 20210903
  Receipt Date: 20211005
  Transmission Date: 20220303
  Serious: Yes (Death)
  Sender: FDA-Public Use
  Company Number: CA-BAYER-2021-201206

PATIENT

DRUGS (1)
  1. EYLEA [Suspect]
     Active Substance: AFLIBERCEPT
     Indication: Retinal vein occlusion
     Dosage: UNKNOWN TOTAL NUMBER OF DOSES OF EYLEA
     Dates: start: 202010, end: 20201211

REACTIONS (1)
  - Death [Fatal]

NARRATIVE: CASE EVENT DATE: 20210401
